FAERS Safety Report 25541999 (Version 1)
Quarter: 2025Q3

REPORT INFORMATION
  Report Type: Spontaneous
  Country: EU (occurrence: EU)
  Receive Date: 20250711
  Receipt Date: 20250711
  Transmission Date: 20251020
  Serious: Yes (Death, Hospitalization, Other)
  Sender: DIFGEN PHARMACEUTICALS LLC
  Company Number: EU-Difgen-012076

PATIENT
  Age: 23 Year
  Sex: Male

DRUGS (1)
  1. NICOTINE [Suspect]
     Active Substance: NICOTINE
     Indication: Product used for unknown indication
     Route: 048

REACTIONS (11)
  - Respiratory paralysis [Fatal]
  - Loss of consciousness [Fatal]
  - Bradycardia [Fatal]
  - Coma [Fatal]
  - Brain oedema [Fatal]
  - Brain death [Fatal]
  - Toxicity to various agents [Fatal]
  - Intentional overdose [Fatal]
  - Suicide attempt [Fatal]
  - Neurological decompensation [Fatal]
  - Vomiting [Fatal]
